FAERS Safety Report 5042871-4 (Version None)
Quarter: 2006Q2

REPORT INFORMATION
  Report Type: 
  Country: None (occurrence: None)
  Receive Date: 20060627
  Receipt Date: 20060613
  Transmission Date: 20061013
  Serious: Yes (Hospitalization)
  Sender: FDA-Public Use
  Company Number: 2006070583

PATIENT
  Age: 60 Year
  Sex: Male

DRUGS (4)
  1. VFEND [Suspect]
     Indication: FUNGAL INFECTION
     Dosage: 400 MG, ORAL
     Route: 048
     Dates: start: 20060201
  2. THYRADIN (THYROID) [Concomitant]
  3. DIOVAN [Concomitant]
  4. BASEN (VOGLIBOSE) [Concomitant]

REACTIONS (6)
  - ALANINE AMINOTRANSFERASE ABNORMAL [None]
  - ASPARTATE AMINOTRANSFERASE ABNORMAL [None]
  - BLOOD ALKALINE PHOSPHATASE ABNORMAL [None]
  - BLOOD LACTATE DEHYDROGENASE ABNORMAL [None]
  - CARDIAC FAILURE [None]
  - HEPATIC FUNCTION ABNORMAL [None]
